FAERS Safety Report 8613106-8 (Version None)
Quarter: 2012Q3

REPORT INFORMATION
  Report Type: 
  Country: None (occurrence: None)
  Receive Date: 20120822
  Receipt Date: 20120718
  Transmission Date: 20120928
  Serious: Yes (Death)
  Sender: FDA-Public Use
  Company Number: JP-009507513-1208JPN005886

PATIENT

DRUGS (9)
  1. MK-0431A [Suspect]
     Route: 048
     Dates: start: 20120526
  2. MK-0431A [Concomitant]
     Route: 048
     Dates: start: 20120324, end: 20120525
  3. JANUVIA [Concomitant]
     Route: 048
     Dates: start: 20111101, end: 20120323
  4. ONO-5435A [Suspect]
     Indication: TYPE 2 DIABETES MELLITUS
     Route: 048
     Dates: start: 20120526
  5. ONO-5435A [Concomitant]
     Route: 048
     Dates: start: 20120324
  6. MK-0431A [Suspect]
     Route: 048
     Dates: start: 20120526, end: 20120708
  7. MK-0431A [Concomitant]
     Indication: TYPE 2 DIABETES MELLITUS
     Route: 048
     Dates: start: 20120324
  8. SIMVASTATIN [Concomitant]
     Indication: TYPE 2 DIABETES MELLITUS
     Route: 048
     Dates: start: 20080118
  9. JANUVIA [Concomitant]
     Indication: TYPE 2 DIABETES MELLITUS
     Route: 048
     Dates: start: 20111101, end: 20120323

REACTIONS (2)
  - INTERSTITIAL LUNG DISEASE [None]
  - PNEUMONIA [None]
